FAERS Safety Report 11646512 (Version 3)
Quarter: 2016Q1

REPORT INFORMATION
  Report Type: Spontaneous
  Country: US (occurrence: US)
  Receive Date: 20151020
  Receipt Date: 20160129
  Transmission Date: 20160525
  Serious: Yes (Hospitalization)
  Sender: FDA-Public Use
  Company Number: US-ROCHE-1613190

PATIENT
  Age: 70 Year
  Sex: Female
  Weight: 73.55 kg

DRUGS (1)
  1. ESBRIET [Suspect]
     Active Substance: PIRFENIDONE
     Indication: IDIOPATHIC PULMONARY FIBROSIS
     Dosage: 3 CAPSULES
     Route: 048
     Dates: start: 20150701

REACTIONS (4)
  - Fall [Unknown]
  - Cerebral haematoma [Unknown]
  - Laceration [Unknown]
  - Dizziness [Unknown]

NARRATIVE: CASE EVENT DATE: 20150712
